FAERS Safety Report 17520073 (Version 6)
Quarter: 2020Q3

REPORT INFORMATION
  Report Type: Spontaneous
  Country: GB (occurrence: GB)
  Receive Date: 20200310
  Receipt Date: 20200727
  Transmission Date: 20201102
  Serious: Yes (Death, Life-Threatening, Hospitalization, Other)
  Sender: FDA-Public Use
  Company Number: GB-MYLANLABS-2020M1024596

PATIENT
  Age: 67 Year
  Sex: Male

DRUGS (3)
  1. CLOZARIL [Suspect]
     Active Substance: CLOZAPINE
     Dosage: UNK
     Route: 048
     Dates: start: 20200522
  2. CLOZARIL [Suspect]
     Active Substance: CLOZAPINE
     Indication: SCHIZOPHRENIA
     Dosage: UNK
     Route: 048
     Dates: start: 20010701, end: 20200305
  3. CLOZARIL [Suspect]
     Active Substance: CLOZAPINE
     Dosage: UNK
     Dates: start: 20200425

REACTIONS (9)
  - Tachycardia [Unknown]
  - Delusion [Unknown]
  - SARS-CoV-2 test positive [Unknown]
  - General physical health deterioration [Unknown]
  - Seizure [Fatal]
  - Lower respiratory tract infection [Unknown]
  - Neuroleptic malignant syndrome [Unknown]
  - Schizophrenia [Unknown]
  - Catatonia [Unknown]

NARRATIVE: CASE EVENT DATE: 20200304
